FAERS Safety Report 17946220 (Version 1)
Quarter: 2020Q2

REPORT INFORMATION
  Report Type: Spontaneous
  Country: US (occurrence: US)
  Receive Date: 20200625
  Receipt Date: 20200625
  Transmission Date: 20200714
  Serious: No
  Sender: FDA-Public Use
  Company Number: US-GALDERMA-US2020010440

PATIENT
  Sex: Female

DRUGS (12)
  1. TRETINOIN. [Concomitant]
     Active Substance: TRETINOIN
     Indication: ACNE
     Route: 061
  2. CLINDAMYCIN. [Concomitant]
     Active Substance: CLINDAMYCIN
     Indication: ACNE
     Route: 061
  3. MINOCYCLINE [Concomitant]
     Active Substance: MINOCYCLINE HYDROCHLORIDE
     Indication: ACNE
     Route: 048
  4. BENZOYL PEROXIDE (BENZOYL PEROXIDE) [Suspect]
     Active Substance: BENZOYL PEROXIDE
     Indication: ACNE
     Route: 061
  5. ADAPALENE (ADAPALENE) [Suspect]
     Active Substance: ADAPALENE
     Indication: ACNE
     Route: 061
  6. ERYTHROMYCIN. [Concomitant]
     Active Substance: ERYTHROMYCIN
     Indication: ACNE
     Route: 061
  7. DOXYCYCLINE (DOXYCYCLINE) CAPSULES, 40 MG [Suspect]
     Active Substance: DOXYCYCLINE
     Indication: ACNE
     Route: 048
  8. ETHINYLESTRADIOL/NORGESTIMATE [Concomitant]
     Active Substance: ETHINYL ESTRADIOL\NORGESTIMATE
     Indication: ACNE
     Route: 048
  9. BENZOYL PEROXIDE/CLINDAMYCIN [Concomitant]
     Active Substance: BENZOYL PEROXIDE\CLINDAMYCIN
     Indication: ACNE
     Route: 061
  10. ADAPALENE/BPO [Suspect]
     Active Substance: ADAPALENE\BENZOYL PEROXIDE
     Indication: ACNE
     Route: 061
  11. CETAPHIL [COSMETICS] [Suspect]
     Active Substance: COSMETICS
     Indication: ACNE
     Route: 061
  12. ETHINYLESTRADIOL/NORGESTIMATE [Concomitant]
     Active Substance: ETHINYL ESTRADIOL\NORGESTIMATE
     Indication: CONTRACEPTION

REACTIONS (2)
  - Drug ineffective [Unknown]
  - Product use in unapproved indication [Recovered/Resolved]
